FAERS Safety Report 7719110-6 (Version None)
Quarter: 2011Q3

REPORT INFORMATION
  Report Type: 
  Country: None (occurrence: None)
  Receive Date: 20110830
  Receipt Date: 20110822
  Transmission Date: 20111222
  Serious: Yes (Hospitalization, Other)
  Sender: FDA-Public Use
  Company Number: FR-BRISTOL-MYERS SQUIBB COMPANY-15541071

PATIENT
  Age: 72 Year
  Sex: Female

DRUGS (11)
  1. ACTONEL [Concomitant]
  2. METFORMIN HCL [Concomitant]
  3. PERINDOPRIL ERBUMINE [Concomitant]
  4. ATORVASTATIN CALCIUM [Concomitant]
  5. ACETAMINOPHEN AND TRAMADOL HCL [Concomitant]
  6. ONGLYZA [Suspect]
     Indication: DIABETES MELLITUS
     Route: 048
     Dates: start: 20110125, end: 20110203
  7. NEXIUM [Concomitant]
  8. ATARAX [Concomitant]
  9. REPAGLINIDE [Concomitant]
     Dosage: 4 MG IN MORNING,2 MG IN THE NOON, 2MG IN THE EVENING.
  10. CYMBALTA [Concomitant]
     Indication: DEPRESSION
  11. BOTULINUM A TOXIN [Suspect]
     Dosage: 1 DF= 1 INJ.ON BOTH HAND,OCT2010,21JAN2011.
     Dates: start: 20101001, end: 20110121

REACTIONS (6)
  - PETECHIAE [None]
  - RASH ERYTHEMATOUS [None]
  - GASTROINTESTINAL HAEMORRHAGE [None]
  - URTICARIA [None]
  - RASH [None]
  - SKIN EXFOLIATION [None]
